FAERS Safety Report 19674584 (Version 1)
Quarter: 2021Q3

REPORT INFORMATION
  Report Type: Spontaneous
  Country: US (occurrence: US)
  Receive Date: 20210809
  Receipt Date: 20210809
  Transmission Date: 20211014
  Serious: Yes (Other)
  Sender: FDA-Public Use
  Company Number: None

PATIENT
  Age: 70 Year
  Sex: Female
  Weight: 43.2 kg

DRUGS (12)
  1. NOVOLOG [Concomitant]
     Active Substance: INSULIN ASPART
  2. LEVOTHYROXINE. [Concomitant]
     Active Substance: LEVOTHYROXINE
  3. AFINITOR [Suspect]
     Active Substance: EVEROLIMUS
     Indication: NEUROENDOCRINE TUMOUR
     Route: 048
     Dates: start: 20210312, end: 20210807
  4. FERROUS SULFATE. [Concomitant]
     Active Substance: FERROUS SULFATE
  5. SANDOSTATIN [Concomitant]
     Active Substance: OCTREOTIDE ACETATE
  6. AFINITOR [Suspect]
     Active Substance: EVEROLIMUS
     Indication: THYROID CANCER
     Route: 048
     Dates: start: 20210312, end: 20210807
  7. TRESIBA [Concomitant]
     Active Substance: INSULIN DEGLUDEC
  8. CALCIUM CARBONATE VIT D [Concomitant]
  9. AFINITOR [Suspect]
     Active Substance: EVEROLIMUS
     Indication: PANCREATIC CARCINOMA
     Route: 048
     Dates: start: 20210312, end: 20210807
  10. PROTONIX [Concomitant]
     Active Substance: PANTOPRAZOLE SODIUM
  11. ONDANSETRON [Concomitant]
     Active Substance: ONDANSETRON
  12. ERGOCALCIFEROL. [Concomitant]
     Active Substance: ERGOCALCIFEROL

REACTIONS (1)
  - Hospice care [None]

NARRATIVE: CASE EVENT DATE: 20210807
